FAERS Safety Report 8068660-4 (Version None)
Quarter: 2012Q1

REPORT INFORMATION
  Report Type: 
  Country: None (occurrence: None)
  Receive Date: 20120124
  Receipt Date: 20111117
  Transmission Date: 20120608
  Serious: No
  Sender: FDA-Public Use
  Company Number: US-AMGEN-USASP2011060759

PATIENT
  Age: 68 Year
  Sex: Female

DRUGS (4)
  1. IMMUNE GLOBULIN NOS [Concomitant]
  2. CALCIUM + VIT D [Concomitant]
     Dosage: UNK
  3. ZANTAC [Concomitant]
     Dosage: UNK
  4. PROLIA [Suspect]
     Indication: OSTEOPOROSIS POSTMENOPAUSAL
     Dosage: UNK UNK, Q6MO
     Dates: start: 20111116

REACTIONS (1)
  - INFLUENZA LIKE ILLNESS [None]
